FAERS Safety Report 11431205 (Version 3)
Quarter: 2018Q3

REPORT INFORMATION
  Report Type: Spontaneous
  Country: US (occurrence: US)
  Receive Date: 20150828
  Receipt Date: 20180703
  Transmission Date: 20181010
  Serious: Yes (Hospitalization, Other)
  Sender: FDA-Public Use
  Company Number: US-DSJP-DSU-2015-126349

PATIENT

DRUGS (5)
  1. BENICAR HCT [Suspect]
     Active Substance: HYDROCHLOROTHIAZIDE\OLMESARTAN MEDOXOMIL
     Dosage: 40/12.5MG, QD
     Dates: start: 20140327, end: 20140407
  2. BENICAR HCT [Suspect]
     Active Substance: HYDROCHLOROTHIAZIDE\OLMESARTAN MEDOXOMIL
     Indication: HYPERTENSION
     Dosage: 40/12.5MG, QD
     Dates: start: 20110223, end: 20140325
  3. AMLODIPINE BESYLATE. [Concomitant]
     Active Substance: AMLODIPINE BESYLATE
     Indication: PRODUCT USED FOR UNKNOWN INDICATION
     Dosage: 5MG DAILY
     Dates: start: 2008
  4. METOPROLOL TARTRATE. [Concomitant]
     Active Substance: METOPROLOL TARTRATE
     Indication: PRODUCT USED FOR UNKNOWN INDICATION
     Dosage: 25MG DAILY
     Dates: start: 200903
  5. AVALIDE [Concomitant]
     Active Substance: HYDROCHLOROTHIAZIDE\IRBESARTAN
     Indication: PRODUCT USED FOR UNKNOWN INDICATION
     Dosage: 300/12.5MG DAILY
     Dates: start: 200803, end: 201102

REACTIONS (15)
  - Muscle spasms [Unknown]
  - Hiatus hernia [Unknown]
  - Hypotension [Unknown]
  - Myalgia [Unknown]
  - Large intestine polyp [Unknown]
  - Clostridium difficile infection [Unknown]
  - Sprue-like enteropathy [Recovering/Resolving]
  - Acute kidney injury [Unknown]
  - Haemorrhoids [Unknown]
  - Colitis ischaemic [Unknown]
  - Decreased appetite [Unknown]
  - Biliary dilatation [Unknown]
  - Crohn^s disease [Unknown]
  - Diverticulum intestinal [Unknown]
  - Constipation [Unknown]

NARRATIVE: CASE EVENT DATE: 20110705
